FAERS Safety Report 21525541 (Version 1)
Quarter: 2022Q4

REPORT INFORMATION
  Report Type: Spontaneous
  Country: DE (occurrence: DE)
  Receive Date: 20221030
  Receipt Date: 20221030
  Transmission Date: 20230112
  Serious: Yes (Hospitalization)
  Sender: FDA-Public Use
  Company Number: DE-ADRED-08309-01

PATIENT
  Age: 60 Year
  Sex: Female
  Weight: 75 kg

DRUGS (13)
  1. CINACALCET [Suspect]
     Active Substance: CINACALCET
     Indication: Product used for unknown indication
     Dosage: 90 MG, 0-0-1-0, TABLETTEN (90MG, 0-0-1-0, TABLETS)
     Route: 048
  2. PIPERACILLIN SODIUM\TAZOBACTAM SODIUM [Suspect]
     Active Substance: PIPERACILLIN SODIUM\TAZOBACTAM SODIUM
     Indication: Product used for unknown indication
     Dosage: 4|0.5 G, NACH SCHEMA, INJEKTIONS-/INFUSIONSL?SUNG (4|0.5 G, ACCORDING TO THE SCHEME, SOLUTION FOR IN
     Route: 042
  3. TORSEMIDE [Suspect]
     Active Substance: TORSEMIDE
     Indication: Product used for unknown indication
     Dosage: 50 MG, NACH SCHEMA, TABLETTEN (50 MG, ACCORDING TO THE SCHEME, TABLETS)
     Route: 048
  4. EZETIMIBE [Concomitant]
     Active Substance: EZETIMIBE
     Indication: Product used for unknown indication
     Dosage: 10 MG, 1-0-0-0, TABLETTEN (10 MG, 1-0-0-0, TABLETS)
     Route: 048
  5. GABAPENTIN [Concomitant]
     Active Substance: GABAPENTIN
     Indication: Product used for unknown indication
     Dosage: 100 MG, 1-0-0-2, KAPSELN (100 MG, 1-0-0-2, CAPSULES)
     Route: 048
  6. PANTOPRAZOLE [Concomitant]
     Active Substance: PANTOPRAZOLE
     Indication: Product used for unknown indication
     Dosage: 40 MG, 1-0-0-0, RETARD-TABLETTEN (40 MG, 1-0-0-0, PROLONGED-RELEASE TABLETS)
     Route: 048
  7. BECLOMETHASONE\FORMOTEROL [Concomitant]
     Active Substance: BECLOMETHASONE\FORMOTEROL
     Indication: Product used for unknown indication
     Dosage: 100|6 ?G, 2-0-2-0, DOSIERAEROSOL (100|6 ?G, 2-0-2-0, DOSIERAEROSOL)
  8. ALFACALCIDOL [Concomitant]
     Active Substance: ALFACALCIDOL
     Indication: Product used for unknown indication
     Dosage: 0.25 ?G, 0-0-1-0, KAPSELN (0.25 ?G, 0-0-1-0, CAPSULES)
     Route: 048
  9. CHOLECALCIFEROL [Concomitant]
     Active Substance: CHOLECALCIFEROL
     Indication: Product used for unknown indication
     Dosage: 20000 IE, NACH SCHEMA, KAPSELN (20000 IU, ACCORDING TO THE SCHEME, CAPSULES)
     Route: 048
  10. DALTEPARIN [Concomitant]
     Active Substance: DALTEPARIN
     Indication: Product used for unknown indication
     Dosage: 2500 IE, 0-0-1-0, FERTIGSPRITZEN (2500 IU, 0-0-1-0, PRE-FILLED SYRINGES)
     Route: 058
  11. ALBUTEROL [Concomitant]
     Active Substance: ALBUTEROL
     Indication: Product used for unknown indication
     Dosage: 0.1 MG, BEDARF, DOSIERAEROSOL (0.1 MG, AS NEEDED, METERED DOSE INHALER)
  12. Eisen(III) [Concomitant]
     Indication: Product used for unknown indication
     Dosage: 500 MG, 1-1-1-0, TABLETTEN (500MG, 1-1-1-0, TABLETS)
     Route: 048
  13. ROSUVASTATIN [Concomitant]
     Active Substance: ROSUVASTATIN
     Indication: Product used for unknown indication
     Dosage: 10 MG, 0-0-1-0, TABLETTEN (10 MG, 0-0-1-0, TABLETS)
     Route: 048

REACTIONS (4)
  - Ileus [Unknown]
  - Diarrhoea [Unknown]
  - Nausea [Unknown]
  - Pain [Unknown]
